FAERS Safety Report 6233784-0 (Version None)
Quarter: 2009Q2

REPORT INFORMATION
  Report Type: 
  Country: None (occurrence: None)
  Receive Date: 20090618
  Receipt Date: 20070626
  Transmission Date: 20091009
  Serious: Yes (Hospitalization, Other)
  Sender: FDA-Public Use
  Company Number: US-ASTRAZENECA-2006UW24853

PATIENT
  Age: 14868 Day
  Sex: Female
  Weight: 73.5 kg

DRUGS (24)
  1. SEROQUEL [Suspect]
     Indication: DEPRESSION
     Route: 048
     Dates: start: 20000822
  2. SEROQUEL [Suspect]
     Indication: ANXIETY
     Route: 048
     Dates: start: 20000822
  3. SEROQUEL [Suspect]
     Indication: SLEEP DISORDER
     Route: 048
     Dates: start: 20000822
  4. SEROQUEL [Suspect]
     Dosage: 100 MG - 300 MG DAILY
     Route: 048
     Dates: start: 20000822, end: 20021011
  5. SEROQUEL [Suspect]
     Dosage: 100 MG - 300 MG DAILY
     Route: 048
     Dates: start: 20000822, end: 20021011
  6. SEROQUEL [Suspect]
     Dosage: 100 MG - 300 MG DAILY
     Route: 048
     Dates: start: 20000822, end: 20021011
  7. CLOZAPINE [Concomitant]
  8. OLANZAPINE [Concomitant]
  9. ATENOLOL [Concomitant]
     Indication: TACHYCARDIA
     Dates: start: 20020723
  10. LIPITOR [Concomitant]
     Dates: start: 20000823
  11. KLONOPIN [Concomitant]
     Indication: SLEEP DISORDER
     Dates: start: 20021011
  12. PREVACID [Concomitant]
     Indication: DYSPEPSIA
     Dosage: 30 MG - 60 MG DAILY
     Route: 048
     Dates: start: 20000821
  13. PREVACID [Concomitant]
     Indication: GASTROOESOPHAGEAL REFLUX DISEASE
     Dosage: 30 MG - 60 MG DAILY
     Route: 048
     Dates: start: 20000821
  14. PAXIL [Concomitant]
     Indication: DEPRESSION
     Dosage: 30 MG TO 75 MG DAILY
     Route: 048
     Dates: start: 19981221
  15. AMBIEN [Concomitant]
     Dates: start: 20000829
  16. ALPRAZOLAM [Concomitant]
     Dosage: 2 MG TO 4 MG DAILY
     Route: 048
     Dates: start: 20011203
  17. REMERON [Concomitant]
     Route: 048
     Dates: start: 20011128
  18. PREMARIN [Concomitant]
     Dates: start: 19890421
  19. TRAZODONE HCL [Concomitant]
     Dosage: 50 MG TO 200 MG DAILY
     Dates: start: 19980612
  20. PROTONIX [Concomitant]
     Dates: start: 20020723
  21. LORAZEPAM [Concomitant]
     Dates: start: 19981221
  22. ESTRADIOL [Concomitant]
     Dosage: 1 MG TO 2 MG DAILY
     Dates: start: 20010616
  23. PROMETHAZINE [Concomitant]
     Dosage: 25 MG - 75 MG DAILY
     Dates: start: 20000821
  24. ALBUTEROL [Concomitant]
     Dates: start: 20020723

REACTIONS (5)
  - DIABETES MELLITUS [None]
  - DIABETIC NEUROPATHY [None]
  - PANCREATITIS [None]
  - TYPE 1 DIABETES MELLITUS [None]
  - TYPE 2 DIABETES MELLITUS [None]
